FAERS Safety Report 6638371-8 (Version None)
Quarter: 2010Q1

REPORT INFORMATION
  Report Type: 
  Country: None (occurrence: None)
  Receive Date: 20100317
  Receipt Date: 20100310
  Transmission Date: 20100710
  Serious: Yes (Hospitalization)
  Sender: FDA-Public Use
  Company Number: A0849509A

PATIENT
  Age: 71 Year
  Sex: Male

DRUGS (10)
  1. AVANDARYL [Suspect]
     Dosage: 1TAB PER DAY
     Route: 048
     Dates: start: 20070101, end: 20100201
  2. GLYBURIDE [Concomitant]
  3. ALLOPURINOL [Concomitant]
  4. POTASSIUM [Concomitant]
  5. SIMVASTATIN [Concomitant]
  6. AMLODIPINE BESYLATE AND BENAZEPRIL HCL [Concomitant]
  7. CLONIDINE [Concomitant]
  8. TRICOR [Concomitant]
  9. HYDROCHLOROTHIAZIDE [Concomitant]
  10. BENICAR [Concomitant]

REACTIONS (4)
  - CARDIAC PACEMAKER INSERTION [None]
  - DRUG INEFFECTIVE [None]
  - OEDEMA PERIPHERAL [None]
  - SWELLING FACE [None]
